FAERS Safety Report 23232645 (Version 4)
Quarter: 2024Q1

REPORT INFORMATION
  Report Type: Spontaneous
  Country: CN (occurrence: CN)
  Receive Date: 20231128
  Receipt Date: 20240215
  Transmission Date: 20240410
  Serious: Yes (Life-Threatening, Other)
  Sender: FDA-Public Use
  Company Number: CN-SHANGHAI JUNSHI BIOSCIENCES CO., LTD.-CN2023008564

PATIENT

DRUGS (15)
  1. TORIPALIMAB [Suspect]
     Active Substance: TORIPALIMAB
     Indication: Oesophageal carcinoma
     Dosage: 240 MG
     Route: 041
     Dates: start: 20231012, end: 20231012
  2. TORIPALIMAB [Suspect]
     Active Substance: TORIPALIMAB
     Dosage: 240 MG
     Route: 041
     Dates: start: 20231102, end: 20231102
  3. TORIPALIMAB [Suspect]
     Active Substance: TORIPALIMAB
     Dosage: 240 MG
     Route: 041
     Dates: start: 20231113, end: 20231113
  4. TORIPALIMAB [Suspect]
     Active Substance: TORIPALIMAB
     Dosage: 240 MG
     Route: 041
     Dates: start: 20231124
  5. TORIPALIMAB [Suspect]
     Active Substance: TORIPALIMAB
     Dosage: 240 MG
     Route: 041
     Dates: start: 20231216
  6. NEDAPLATIN [Suspect]
     Active Substance: NEDAPLATIN
     Indication: Oesophageal carcinoma
     Dosage: 130 MG
     Route: 041
     Dates: start: 20231012, end: 20231102
  7. NEDAPLATIN [Suspect]
     Active Substance: NEDAPLATIN
     Dosage: 130 MG
     Route: 041
     Dates: start: 20231102, end: 20231102
  8. NEDAPLATIN [Suspect]
     Active Substance: NEDAPLATIN
     Dosage: 130 MG
     Route: 041
     Dates: start: 20231113, end: 20231113
  9. NEDAPLATIN [Suspect]
     Active Substance: NEDAPLATIN
     Dosage: 130 MG
     Route: 041
     Dates: start: 20231124
  10. NEDAPLATIN [Suspect]
     Active Substance: NEDAPLATIN
     Dosage: 130 MG
     Route: 041
     Dates: start: 20231216
  11. PACLITAXEL [Suspect]
     Active Substance: PACLITAXEL
     Indication: Oesophageal carcinoma
     Dosage: 400 MG
     Route: 041
     Dates: start: 20231012, end: 20231012
  12. PACLITAXEL [Suspect]
     Active Substance: PACLITAXEL
     Dosage: 400 MG
     Route: 041
     Dates: start: 20231102, end: 20231102
  13. PACLITAXEL [Suspect]
     Active Substance: PACLITAXEL
     Dosage: 400 MG
     Route: 041
     Dates: start: 20231113, end: 20231113
  14. PACLITAXEL [Suspect]
     Active Substance: PACLITAXEL
     Dosage: 400 MG
     Route: 041
     Dates: start: 20231124
  15. PACLITAXEL [Suspect]
     Active Substance: PACLITAXEL
     Dosage: 400 MG
     Route: 041
     Dates: start: 20231216

REACTIONS (4)
  - White blood cell count decreased [Recovered/Resolved]
  - Neutrophil count decreased [Recovered/Resolved]
  - Myelosuppression [Recovered/Resolved]
  - Off label use [Unknown]

NARRATIVE: CASE EVENT DATE: 20231012
